FAERS Safety Report 15750532 (Version 5)
Quarter: 2019Q1

REPORT INFORMATION
  Report Type: Report from Study
  Country: CA (occurrence: CA)
  Receive Date: 20181221
  Receipt Date: 20190321
  Transmission Date: 20190417
  Serious: Yes (Hospitalization, Other)
  Sender: FDA-Public Use
  Company Number: CA-JNJFOC-20181025550

PATIENT
  Age: 20 Year
  Sex: Female

DRUGS (3)
  1. REMICADE [Suspect]
     Active Substance: INFLIXIMAB
     Indication: CROHN^S DISEASE
     Route: 042
  2. REMICADE [Suspect]
     Active Substance: INFLIXIMAB
     Indication: CROHN^S DISEASE
     Route: 042
  3. REMICADE [Suspect]
     Active Substance: INFLIXIMAB
     Indication: CROHN^S DISEASE
     Route: 042
     Dates: start: 20150909

REACTIONS (6)
  - General physical health deterioration [Recovered/Resolved]
  - Nasal congestion [Unknown]
  - Crohn^s disease [Recovered/Resolved]
  - Rhinitis [Unknown]
  - Abdominal pain [Recovered/Resolved]
  - Vascular access complication [Unknown]

NARRATIVE: CASE EVENT DATE: 20181016
